FAERS Safety Report 9681342 (Version 2)
Quarter: 2013Q4

REPORT INFORMATION
  Report Type: Report from Study
  Country: US (occurrence: US)
  Receive Date: 20131111
  Receipt Date: 20131111
  Transmission Date: 20140711
  Serious: Yes (Hospitalization)
  Sender: FDA-Public Use
  Company Number: US-ABBVIE-13P-163-1143655-00

PATIENT
  Age: 57 Year
  Sex: Female
  Weight: 51.76 kg

DRUGS (6)
  1. HUMIRA [Suspect]
     Indication: RHEUMATOID ARTHRITIS
     Route: 058
     Dates: start: 201306, end: 201309
  2. HUMIRA [Suspect]
     Indication: COUGH
  3. HUMIRA [Suspect]
     Indication: LOWER RESPIRATORY TRACT INFECTION
  4. MTX [Concomitant]
     Indication: RHEUMATOID ARTHRITIS
     Dates: start: 201306, end: 201309
  5. SS2 [Concomitant]
     Indication: RHEUMATOID ARTHRITIS
     Dosage: RED
     Dates: start: 201306, end: 201309
  6. PREDNISONE [Concomitant]
     Indication: RHEUMATOID ARTHRITIS
     Dosage: SS2
     Dates: start: 201306

REACTIONS (5)
  - Cough [Recovering/Resolving]
  - Pneumonia [Recovering/Resolving]
  - Interstitial lung disease [Recovered/Resolved]
  - Dyspnoea [Recovering/Resolving]
  - Pneumonia [Recovering/Resolving]
